FAERS Safety Report 12786849 (Version 7)
Quarter: 2017Q2

REPORT INFORMATION
  Report Type: Report from Study
  Country: PL (occurrence: PL)
  Receive Date: 20160927
  Receipt Date: 20170621
  Transmission Date: 20170830
  Serious: Yes (Life-Threatening, Hospitalization)
  Sender: FDA-Public Use
  Company Number: PL-ROCHE-1835336

PATIENT
  Age: 56 Year
  Sex: Male
  Weight: 85 kg

DRUGS (3)
  1. BEVACIZUMAB [Suspect]
     Active Substance: BEVACIZUMAB
     Indication: RENAL CELL CARCINOMA
     Dosage: ON 27/JUL/2016, THE PATIENT RECEIVED THE MOST RECENT DOSE OF BEVACIZUMAB (1275 MG) PRIOR TO ONSET OF
     Route: 042
     Dates: start: 20151229
  2. ATEZOLIZUMAB [Suspect]
     Active Substance: ATEZOLIZUMAB
     Indication: RENAL CELL CARCINOMA
     Dosage: ON 27/JUL/2016, THE PATIENT RECEIVED THE MOST RECENT DOSE OF ATEZOLIZUMAB (1200 MG) PRIOR TO ONSET O
     Route: 042
     Dates: start: 20151229
  3. BISOCARD [Concomitant]
     Active Substance: BISOPROLOL
     Indication: TACHYCARDIA
     Route: 048
     Dates: start: 201503

REACTIONS (1)
  - Haemorrhagic stroke [Recovered/Resolved]

NARRATIVE: CASE EVENT DATE: 20160920
